FAERS Safety Report 23426269 (Version 2)
Quarter: 2025Q1

REPORT INFORMATION
  Report Type: Report from Study
  Country: US (occurrence: US)
  Receive Date: 20240122
  Receipt Date: 20250119
  Transmission Date: 20250409
  Serious: No
  Sender: ACCORD
  Company Number: US-Accord-375285

PATIENT
  Age: 50 Year
  Sex: Male

DRUGS (2)
  1. CLOZAPINE [Suspect]
     Active Substance: CLOZAPINE
     Indication: Product used for unknown indication
  2. CLOZAPINE [Suspect]
     Active Substance: CLOZAPINE
     Indication: Product used for unknown indication

REACTIONS (3)
  - Imprisonment [Unknown]
  - Drooling [Unknown]
  - Therapy interrupted [Unknown]
